FAERS Safety Report 4844909-3 (Version None)
Quarter: 2005Q4

REPORT INFORMATION
  Report Type: 
  Country: None (occurrence: None)
  Receive Date: 20051128
  Receipt Date: 20051117
  Transmission Date: 20060501
  Serious: Yes (Hospitalization)
  Sender: FDA-Public Use
  Company Number: 2003-01-0043

PATIENT
  Age: 33 Year
  Sex: Male

DRUGS (4)
  1. NEOCLARITYN (DESLORATADINE) TABLETS [Suspect]
     Indication: RHINITIS PERENNIAL
     Dates: start: 20021202, end: 20021206
  2. LOSEC [Concomitant]
  3. VOLTAREN [Concomitant]
  4. FLONASE [Concomitant]

REACTIONS (2)
  - CELLULITIS [None]
  - CONDITION AGGRAVATED [None]
